FAERS Safety Report 6653035-2 (Version None)
Quarter: 2010Q1

REPORT INFORMATION
  Report Type: 
  Country: None (occurrence: None)
  Receive Date: 20100326
  Receipt Date: 20100316
  Transmission Date: 20100710
  Serious: Yes (Other)
  Sender: FDA-Public Use
  Company Number: PHHY2010DE12878

PATIENT
  Age: 24 Year
  Sex: Male

DRUGS (9)
  1. CLOZAPINE [Suspect]
     Indication: SCHIZOPHRENIA
     Dosage: 12.5 MG / DAY
  2. CLOZAPINE [Suspect]
     Dosage: 250 MG / DAY
  3. CLOZAPINE [Suspect]
     Dosage: 300 MG / DAY
  4. CLOZAPINE [Suspect]
     Dosage: 12.5 MG/ DAY
  5. CLOZAPINE [Suspect]
     Dosage: 25 MG EVERY SECOND DAY
  6. CLOZAPINE [Suspect]
     Dosage: 300 MG / DAY
  7. HALOPERIDOL [Concomitant]
     Dosage: 6 MG / DAY
  8. OLANZAPINE [Concomitant]
  9. PERAZINE [Concomitant]

REACTIONS (13)
  - ANTIPSYCHOTIC DRUG LEVEL INCREASED [None]
  - ARTHRALGIA [None]
  - ASTHENIA [None]
  - C-REACTIVE PROTEIN INCREASED [None]
  - COUGH [None]
  - INFECTION [None]
  - LEUKOCYTOSIS [None]
  - LYMPHOCYTE COUNT DECREASED [None]
  - NAUSEA [None]
  - NEUTROPHIL COUNT INCREASED [None]
  - PYREXIA [None]
  - RHINITIS [None]
  - WITHDRAWAL SYNDROME [None]
